FAERS Safety Report 6901619-6 (Version None)
Quarter: 2010Q3

REPORT INFORMATION
  Report Type: 
  Country: None (occurrence: None)
  Receive Date: 20100803
  Receipt Date: 20080227
  Transmission Date: 20110219
  Serious: No
  Sender: FDA-Public Use
  Company Number: US-PFIZER INC-2008019445

PATIENT
  Sex: Female
  Weight: 52.2 kg

DRUGS (6)
  1. LYRICA [Suspect]
     Indication: FIBROMYALGIA
     Dates: start: 20071101
  2. VICODIN [Concomitant]
  3. ATIVAN [Concomitant]
  4. EFFEXOR [Concomitant]
  5. SYNTHROID [Concomitant]
  6. ORAL CONTRACEPTIVE NOS [Concomitant]

REACTIONS (2)
  - COGNITIVE DISORDER [None]
  - SEDATION [None]
